FAERS Safety Report 7254390-5 (Version None)
Quarter: 2011Q1

REPORT INFORMATION
  Report Type: 
  Country: None (occurrence: None)
  Receive Date: 20110129
  Receipt Date: 20100407
  Transmission Date: 20110831
  Serious: No
  Sender: FDA-Public Use
  Company Number: US-ABBOTT-10P-163-0638288-00

PATIENT
  Age: 41 Year
  Sex: Female

DRUGS (1)
  1. HUMIRA [Suspect]
     Indication: INFLAMMATION
     Dates: start: 20100319, end: 20100402

REACTIONS (3)
  - PAIN [None]
  - ASTHENIA [None]
  - CHILLS [None]
